FAERS Safety Report 6561042-3 (Version None)
Quarter: 2010Q1

REPORT INFORMATION
  Report Type: 
  Country: None (occurrence: None)
  Receive Date: 20100130
  Receipt Date: 20091005
  Transmission Date: 20100710
  Serious: No
  Sender: FDA-Public Use
  Company Number: US-ABBOTT-09P-163-0601396-00

PATIENT
  Sex: Female
  Weight: 61.29 kg

DRUGS (13)
  1. HUMIRA [Suspect]
     Indication: PSORIASIS
     Dates: start: 20080701
  2. DIOVAN [Concomitant]
     Indication: HYPERTENSION
  3. ATENOLOL [Concomitant]
     Indication: HYPERTENSION
  4. INDAPAMIDE [Concomitant]
     Indication: HYPERTENSION
  5. ZETIA [Concomitant]
     Indication: BLOOD CHOLESTEROL INCREASED
  6. CLARINEX [Concomitant]
     Indication: HYPERSENSITIVITY
  7. PREMARIN [Concomitant]
     Indication: HOT FLUSH
  8. NEXIUM [Concomitant]
     Indication: GASTROOESOPHAGEAL REFLUX DISEASE
  9. SKELAXIN [Concomitant]
     Indication: MYALGIA
  10. KLOR-CON [Concomitant]
     Indication: BLOOD POTASSIUM DECREASED
  11. VERAMYST [Concomitant]
     Indication: SINUS DISORDER
  12. VERAMYST [Concomitant]
     Indication: HYPERSENSITIVITY
  13. BONIVA [Concomitant]
     Indication: OSTEOPOROSIS

REACTIONS (3)
  - INJECTION SITE HAEMORRHAGE [None]
  - INJECTION SITE NODULE [None]
  - INJECTION SITE PAIN [None]
